FAERS Safety Report 9605908 (Version 1)
Quarter: 2013Q4

REPORT INFORMATION
  Report Type: Spontaneous
  Country: GB (occurrence: GB)
  Receive Date: 20131008
  Receipt Date: 20131008
  Transmission Date: 20140711
  Serious: Yes (Hospitalization)
  Sender: FDA-Public Use
  Company Number: GB-ACTAVIS-2013-17851

PATIENT
  Age: 71 Year
  Sex: Male

DRUGS (5)
  1. IBUPROFEN (UNKNOWN) [Suspect]
     Indication: PAIN
     Dosage: 600 MG, TID
     Route: 048
     Dates: start: 20130906, end: 20130913
  2. CO-CODAMOL [Concomitant]
     Indication: PRODUCT USED FOR UNKNOWN INDICATION
     Dosage: 2 DF QID, (30MG/500MG TABLETS. 1 OR 2 FOUR TIMES DAILY)
     Route: 065
  3. QUININE SULPHATE [Concomitant]
     Indication: PRODUCT USED FOR UNKNOWN INDICATION
     Dosage: 300 MG, DAILY
     Route: 065
  4. HYDROXYCARBAMIDE [Concomitant]
     Indication: PRODUCT USED FOR UNKNOWN INDICATION
     Dosage: 1000 MG DAILY (500MG CAPSULES, 2 DAILY)
     Route: 065
  5. RANITIDINE [Concomitant]
     Indication: PRODUCT USED FOR UNKNOWN INDICATION
     Dosage: 300 MG DAILY,  AT NIGHT.
     Route: 065

REACTIONS (6)
  - Gastrointestinal haemorrhage [Recovering/Resolving]
  - Diarrhoea [Unknown]
  - Faeces discoloured [Unknown]
  - Dizziness [Unknown]
  - Abdominal pain [Unknown]
  - Frequent bowel movements [Unknown]
